FAERS Safety Report 7011729-3 (Version None)
Quarter: 2010Q3

REPORT INFORMATION
  Report Type: 
  Country: None (occurrence: None)
  Receive Date: 20100923
  Receipt Date: 20090622
  Transmission Date: 20110219
  Serious: No
  Sender: FDA-Public Use
  Company Number: US-WYE-H09893109

PATIENT
  Age: 44 Year
  Sex: Female

DRUGS (2)
  1. PREMARIN [Suspect]
     Indication: VULVOVAGINAL DRYNESS
     Dosage: 1-2 GM NIGHTLY
     Route: 067
     Dates: start: 20090616, end: 20090621
  2. LUNESTA [Concomitant]

REACTIONS (3)
  - COUGH [None]
  - DYSPNOEA [None]
  - INCORRECT DOSE ADMINISTERED [None]
